FAERS Safety Report 14505962 (Version 1)
Quarter: 2018Q1

REPORT INFORMATION
  Report Type: Spontaneous
  Country: IT (occurrence: IT)
  Receive Date: 20180208
  Receipt Date: 20180208
  Transmission Date: 20180509
  Serious: Yes (Other)
  Sender: FDA-Public Use
  Company Number: IT-BAYER-2018-023942

PATIENT
  Age: 13 Year
  Sex: Male

DRUGS (1)
  1. ASPIRINA 325 MG [Suspect]
     Active Substance: ASPIRIN
     Indication: PYREXIA
     Dosage: 500 MG, ONCE
     Route: 048
     Dates: start: 20170215, end: 20170215

REACTIONS (2)
  - Eyelid oedema [Recovered/Resolved]
  - Bronchospasm [Recovered/Resolved]

NARRATIVE: CASE EVENT DATE: 20170215
